FAERS Safety Report 24167135 (Version 1)
Quarter: 2024Q3

REPORT INFORMATION
  Report Type: Spontaneous
  Country: CN (occurrence: CN)
  Receive Date: 20240802
  Receipt Date: 20240802
  Transmission Date: 20241016
  Serious: Yes (Other)
  Sender: EAGLE
  Company Number: CN-EAGLE PHARMACEUTICALS, INC.-CN-2024EAG000186

PATIENT
  Age: 59 Year
  Sex: Female
  Weight: 54.7 kg

DRUGS (3)
  1. REMIMAZOLAM [Suspect]
     Active Substance: REMIMAZOLAM
     Indication: Induction of anaesthesia
     Dosage: 25 MG
     Route: 042
     Dates: start: 20240620, end: 20240620
  2. CEFUROXIME SODIUM [Suspect]
     Active Substance: CEFUROXIME SODIUM
     Indication: Infection prophylaxis
     Dosage: 1.5 GRAM
     Route: 042
     Dates: start: 20240620, end: 20240620
  3. SUFENTANIL CITRATE [Suspect]
     Active Substance: SUFENTANIL CITRATE
     Indication: Product used for unknown indication
     Dosage: 20 MICROGRAM
     Route: 042
     Dates: start: 20240620, end: 20240620

REACTIONS (2)
  - Laryngeal oedema [Recovered/Resolved]
  - Oxygen saturation decreased [Recovered/Resolved]

NARRATIVE: CASE EVENT DATE: 20240620
